FAERS Safety Report 4388893-8 (Version None)
Quarter: 2004Q2

REPORT INFORMATION
  Report Type: 
  Country: None (occurrence: None)
  Receive Date: 20040624
  Receipt Date: 20040615
  Transmission Date: 20050107
  Serious: Yes (Hospitalization)
  Sender: FDA-Public Use
  Company Number: 2004-BP-04617BP

PATIENT
  Age: 69 Year
  Sex: Female

DRUGS (6)
  1. MICARDIS [Suspect]
     Indication: CEREBROVASCULAR ACCIDENT PROPHYLAXIS
     Dosage: PO
     Route: 048
     Dates: start: 20030603, end: 20031222
  2. MICARDIS [Suspect]
     Indication: PROPHYLAXIS
     Dosage: PO
     Route: 048
     Dates: start: 20030603, end: 20031222
  3. RAMIPRIL [Suspect]
     Indication: CEREBROVASCULAR ACCIDENT PROPHYLAXIS
     Dosage: PO
     Route: 048
     Dates: start: 20030603, end: 20031222
  4. RAMIPRIL [Suspect]
     Indication: PROPHYLAXIS
     Dosage: PO
     Route: 048
     Dates: start: 20030603, end: 20031222
  5. ACETYLSALICYLIC ACID SRT [Concomitant]
  6. ORAL HYPOGLYCEMIC AGRNTS (METFORMIN+GLIBENCLAMIDE) [Concomitant]

REACTIONS (2)
  - DYSPNOEA [None]
  - RENAL FAILURE [None]
